FAERS Safety Report 16251902 (Version 1)
Quarter: 2019Q2

REPORT INFORMATION
  Report Type: Spontaneous
  Country: US (occurrence: US)
  Receive Date: 20190429
  Receipt Date: 20190429
  Transmission Date: 20190711
  Serious: Yes (Other)
  Sender: FDA-Public Use
  Company Number: US-PFIZER INC-2019170105

PATIENT
  Age: 3 Year
  Sex: Female

DRUGS (26)
  1. ACETAMINOPHEN. [Concomitant]
     Active Substance: ACETAMINOPHEN
     Indication: PAIN
     Dosage: 4 ML, AS NEEDED (NOT TO EXCEED 5 DOSES/DAY)
     Route: 048
  2. IBUPROFEN. [Concomitant]
     Active Substance: IBUPROFEN
     Indication: PYREXIA
  3. LEVALBUTEROL HCL [Concomitant]
     Active Substance: LEVALBUTEROL HYDROCHLORIDE
     Indication: HYPOXIA
     Dosage: 3 ML, AS NEEDED(EVERY 4 HOURS)
  4. FUROSEMIDE. [Concomitant]
     Active Substance: FUROSEMIDE
     Dosage: 1 ML, 3X/DAY (1ML VIA TUBE EVERY 8 HOURS)
     Route: 048
  5. MELATONIN [Concomitant]
     Active Substance: MELATONIN
     Dosage: 3 MG, 1X/DAY(1 TABLET BY MOUTH EACH NIGHT AT BEDTIME)
     Route: 048
  6. PROBIOTICS [Concomitant]
     Active Substance: PROBIOTICS NOS
     Indication: DIARRHOEA
     Dosage: UNK, AS NEEDED
  7. EPIPEN JR [Concomitant]
     Active Substance: EPINEPHRINE
     Dosage: 0.15 MG, 1X/DAY
     Route: 030
  8. REMODULIN [Concomitant]
     Active Substance: TREPROSTINIL
     Dosage: UNK (36NG/KG/MIN)
     Route: 058
  9. CETIRIZINE HYDROCHLORIDE. [Concomitant]
     Active Substance: CETIRIZINE HYDROCHLORIDE
     Dosage: 2.5 ML, UNK (FOR 30 DAYS)
     Route: 048
  10. NYSTATIN. [Concomitant]
     Active Substance: NYSTATIN
     Dosage: UNK, 3X/DAY(1 APPLICATION APPLY TO SKIN 3 TIMES A DAY)
     Route: 061
  11. PROTOPIC [Concomitant]
     Active Substance: TACROLIMUS
     Dosage: UNK, 2X/DAY(APPLY TO SKIN TWO TIMES A DAY)
     Route: 061
  12. BETHKIS [Concomitant]
     Active Substance: TOBRAMYCIN
     Dosage: 4 ML, 2X/DAY
  13. LASIX [Concomitant]
     Active Substance: FUROSEMIDE
     Dosage: UNK
  14. DIASTAT [DIAZEPAM] [Concomitant]
     Indication: SEIZURE
     Dosage: 10 MG, 1X/DAY(AS NEEDED)
     Route: 054
  15. FLUOCINONIDE. [Concomitant]
     Active Substance: FLUOCINONIDE
     Dosage: UNK, 2X/DAY(1 APPLICATION APPLY TO SKIN TWO TIMES A DAY NO MORE THAN 2 WEEKS IN A ROW)
     Route: 061
  16. BACTROBAN [Concomitant]
     Active Substance: MUPIROCIN\MUPIROCIN CALCIUM
     Dosage: UNK, 2X/DAY(1 APPLICATION APPLY TO SKIN TWO TIMES A DAY)
     Route: 061
  17. POTASSIUM CHLORIDE. [Concomitant]
     Active Substance: POTASSIUM CHLORIDE
     Dosage: 5 ML, 2X/DAY
     Route: 048
  18. ZOSYN [Suspect]
     Active Substance: PIPERACILLIN SODIUM\TAZOBACTAM SODIUM
     Indication: PNEUMONIA ASPIRATION
     Dosage: UNK
  19. ACETAMINOPHEN. [Concomitant]
     Active Substance: ACETAMINOPHEN
     Indication: PYREXIA
  20. FLONASE SENSIMIST ALLERGY RELIEF [Concomitant]
     Active Substance: FLUTICASONE FUROATE
     Dosage: 50 UG, DAILY(1 SPRAY EACH NOSTRIL EVERY DAY)
     Route: 045
  21. ZINC OXIDE. [Concomitant]
     Active Substance: ZINC OXIDE
     Indication: RASH
     Dosage: UNK, AS NEEDED(APPLY TO SKIN AS NEEDED)
     Route: 061
  22. CETIRIZINE [Concomitant]
     Active Substance: CETIRIZINE HYDROCHLORIDE
     Dosage: 5 MG/ML, (30 DAYS)
     Route: 048
  23. REVATIO [Concomitant]
     Active Substance: SILDENAFIL CITRATE
     Dosage: 1 ML, 3X/DAY
     Route: 048
  24. DORNASE ALFA. [Concomitant]
     Active Substance: DORNASE ALFA
     Dosage: 2.5 ML, DAILY
     Dates: start: 20180731
  25. IBUPROFEN. [Concomitant]
     Active Substance: IBUPROFEN
     Indication: PAIN
     Dosage: 4 ML, 4X/DAY (EVERY 6 HOURS AS NEEDED)
     Route: 048
  26. TRIAMCINOLONE [Concomitant]
     Active Substance: TRIAMCINOLONE
     Dosage: UNK, 2X/DAY(APPLY TO SKIN TWO TIMES A DAY)
     Route: 061

REACTIONS (2)
  - Bone marrow failure [Unknown]
  - Diarrhoea [Unknown]
